FAERS Safety Report 10402047 (Version 5)
Quarter: 2015Q1

REPORT INFORMATION
  Report Type: Spontaneous
  Country: US (occurrence: US)
  Receive Date: 20140822
  Receipt Date: 20150226
  Transmission Date: 20150720
  Serious: Yes (Other)
  Sender: FDA-Public Use
  Company Number: US-MYLANLABS-2014M1001444

PATIENT
  Age: 59 Year
  Sex: Male
  Weight: 105.21 kg

DRUGS (8)
  1. BENAZEPRIL [Suspect]
     Active Substance: BENAZEPRIL\BENAZEPRIL HYDROCHLORIDE
     Dosage: 10 MG, UNK
     Route: 065
  2. ZOLPIDEM [Suspect]
     Active Substance: ZOLPIDEM\ZOLPIDEM TARTRATE
     Dosage: 10 MG, UNK
     Route: 065
  3. FENOFIBRATE TABLETS [Suspect]
     Active Substance: FENOFIBRATE
     Indication: BLOOD TRIGLYCERIDES INCREASED
     Dosage: 54 MG, QD
     Route: 065
     Dates: start: 20140626, end: 20140716
  4. SOTALOL HYDROCHLORIDE. [Suspect]
     Active Substance: SOTALOL HYDROCHLORIDE
     Dosage: 240 MG, UNK
     Route: 065
  5. METOPROLOL [Suspect]
     Active Substance: METOPROLOL
     Dosage: 50 MG, UNK
     Route: 065
  6. SIMVASTATIN. [Suspect]
     Active Substance: SIMVASTATIN
     Dosage: 20 MG, UNK
     Route: 065
  7. ASPIRIN. [Suspect]
     Active Substance: ASPIRIN
     Dosage: 81 MG, UNK
     Route: 065
  8. CITALOPRAM [Suspect]
     Active Substance: CITALOPRAM HYDROBROMIDE
     Dosage: 40 MG, UNK
     Route: 065

REACTIONS (11)
  - Suicidal ideation [Recovered/Resolved]
  - Headache [Recovered/Resolved]
  - Insomnia [Recovered/Resolved]
  - Pain [Recovered/Resolved]
  - Lethargy [Recovered/Resolved]
  - Agitation [Recovered/Resolved]
  - Ear pain [Recovered/Resolved]
  - Unevaluable event [Recovered/Resolved]
  - Drug interaction [Recovered/Resolved]
  - Dizziness [Recovered/Resolved]
  - Visual impairment [Recovered/Resolved]

NARRATIVE: CASE EVENT DATE: 2014
